FAERS Safety Report 6531030-1 (Version None)
Quarter: 2010Q1

REPORT INFORMATION
  Report Type: 
  Country: None (occurrence: None)
  Receive Date: 20100108
  Receipt Date: 20090925
  Transmission Date: 20100710
  Serious: No
  Sender: FDA-Public Use
  Company Number: A0809084A

PATIENT
  Age: 62 Year
  Sex: Female

DRUGS (3)
  1. LOVAZA [Suspect]
     Indication: BLOOD CHOLESTEROL INCREASED
     Dosage: 2CAP TWICE PER DAY
     Route: 048
     Dates: start: 20090909
  2. TRAMADOL HCL [Concomitant]
  3. DIOVAN [Concomitant]

REACTIONS (3)
  - INSOMNIA [None]
  - MYALGIA [None]
  - VOMITING [None]
